FAERS Safety Report 8585958-1 (Version None)
Quarter: 2012Q3

REPORT INFORMATION
  Report Type: 
  Country: None (occurrence: None)
  Receive Date: 20120810
  Receipt Date: 20120803
  Transmission Date: 20120928
  Serious: Yes (Other)
  Sender: FDA-Public Use
  Company Number: US-TEVA-352160USA

PATIENT
  Sex: Female
  Weight: 73 kg

DRUGS (4)
  1. REBIF [Suspect]
     Indication: MULTIPLE SCLEROSIS
     Dosage: 18.8571 MICROGRAM DAILY;
     Route: 058
     Dates: start: 20090719
  2. PROVIGIL [Suspect]
     Indication: FATIGUE
     Dates: start: 20120101
  3. UNSPECIFIED MEDICATION [Concomitant]
     Indication: FATIGUE
  4. AMANTADINE HCL [Concomitant]
     Indication: PRODUCT USED FOR UNKNOWN INDICATION

REACTIONS (2)
  - OFF LABEL USE [None]
  - SUICIDAL IDEATION [None]
